FAERS Safety Report 19265377 (Version 1)
Quarter: 2021Q2

REPORT INFORMATION
  Report Type: Spontaneous
  Country: CA (occurrence: CA)
  Receive Date: 20210517
  Receipt Date: 20210517
  Transmission Date: 20210717
  Serious: Yes (Life-Threatening, Hospitalization)
  Sender: FDA-Public Use
  Company Number: CA-ASTRAZENECA-2021A422285

PATIENT
  Age: 64 Year
  Sex: Female

DRUGS (7)
  1. FORXIGA [Suspect]
     Active Substance: DAPAGLIFLOZIN
     Indication: DIABETES MELLITUS
     Route: 048
  2. PANTOPRAZOLE [Concomitant]
     Active Substance: PANTOPRAZOLE
  3. NOVORAPID [Concomitant]
     Active Substance: INSULIN ASPART
  4. BETAHISTINE [Concomitant]
     Active Substance: BETAHISTINE
  5. ENALAPRIL [Concomitant]
     Active Substance: ENALAPRIL
  6. LEVEMIR [Concomitant]
     Active Substance: INSULIN DETEMIR
  7. ATORVASTATIN [Concomitant]
     Active Substance: ATORVASTATIN

REACTIONS (9)
  - Hypoperfusion [Unknown]
  - Hepatic hypoperfusion [Unknown]
  - Hypotension [Unknown]
  - Renal ischaemia [Unknown]
  - Euglycaemic diabetic ketoacidosis [Unknown]
  - Haemostasis [Unknown]
  - Lactic acidosis [Unknown]
  - Shock [Unknown]
  - Arrhythmia [Unknown]
